APPROVED DRUG PRODUCT: IMBRUVICA
Active Ingredient: IBRUTINIB
Strength: 70MG
Dosage Form/Route: CAPSULE;ORAL
Application: N205552 | Product #002
Applicant: PHARMACYCLICS LLC
Approved: Dec 20, 2017 | RLD: Yes | RS: No | Type: RX

PATENTS:
Patent 10004746 | Expires: Jun 3, 2031
Patent 10004746 | Expires: Jun 3, 2031
Patent 8563563 | Expires: Apr 26, 2027
Patent 8563563 | Expires: Apr 26, 2027
Patent 8563563 | Expires: Apr 26, 2027
Patent 8952015 | Expires: Dec 28, 2026
Patent 8952015 | Expires: Dec 28, 2026
Patent 9801881 | Expires: Jun 3, 2031
Patent 8497277 | Expires: Dec 28, 2026
Patent 8497277 | Expires: Dec 28, 2026
Patent 8999999 | Expires: Jun 3, 2031
Patent 8999999 | Expires: Jun 3, 2031
Patent 9540382 | Expires: Aug 18, 2033
Patent 9540382 | Expires: Aug 18, 2033
Patent 8703780 | Expires: Dec 28, 2026
Patent 8476284 | Expires: Dec 28, 2026
Patent 9801883 | Expires: Jun 3, 2031
Patent 9125889 | Expires: Jun 3, 2031
Patent 10004746 | Expires: Jun 3, 2031
Patent 10016435 | Expires: Jun 3, 2031
Patent 10463668 | Expires: Oct 24, 2034
Patent 10478439 | Expires: Jun 3, 2031
Patent 10478439 | Expires: Jun 3, 2031
Patent 10478439 | Expires: Jun 3, 2031
Patent 10478439 | Expires: Jun 3, 2031
Patent 10478439 | Expires: Jun 3, 2031
Patent 10478439 | Expires: Jun 3, 2031
Patent 10004746 | Expires: Jun 3, 2031
Patent 8497277 | Expires: Dec 28, 2026
Patent 8999999 | Expires: Jun 3, 2031
Patent 9540382 | Expires: Aug 18, 2033
Patent 8563563 | Expires: Apr 26, 2027
Patent 11672803 | Expires: Jun 3, 2031
Patent 11672803 | Expires: Jun 3, 2031
Patent 11672803 | Expires: Jun 3, 2031
Patent 11672803 | Expires: Jun 3, 2031
Patent 8497277 | Expires: Dec 28, 2026
Patent 8497277 | Expires: Dec 28, 2026
Patent 10695350 | Expires: Oct 24, 2034
Patent 8476284 | Expires: Dec 28, 2026
Patent 8952015 | Expires: Dec 28, 2026
Patent 8497277 | Expires: Dec 28, 2026
Patent 10478439 | Expires: Jun 3, 2031
Patent 10751342 | Expires: Jun 3, 2031
Patent 10751342 | Expires: Jun 3, 2031
Patent 10751342 | Expires: Jun 3, 2031
Patent 10751342 | Expires: Jun 3, 2031
Patent 9795604 | Expires: Oct 24, 2034
Patent 9795604 | Expires: Oct 24, 2034
Patent 9795604 | Expires: Oct 24, 2034
Patent 10961251 | Expires: Jun 3, 2033
Patent 9296753 | Expires: Oct 30, 2033
Patent 8735403 | Expires: Dec 28, 2026
Patent 9713617 | Expires: Jun 3, 2033
Patent 7514444 | Expires: Dec 28, 2026
Patent 10294231 | Expires: Jun 3, 2033
Patent 9725455 | Expires: Jun 3, 2033
Patent 10294232 | Expires: Jun 3, 2033
Patent 8008309 | Expires: Nov 13, 2027
Patent 8957079 | Expires: Dec 28, 2026
Patent 9181257 | Expires: Dec 28, 2026
Patent 10125140 | Expires: Jun 3, 2033
Patent 8754091 | Expires: Dec 28, 2026
Patent 10106548 | Expires: Jun 3, 2033
Patent 8697711 | Expires: Dec 28, 2026
Patent 10004746*PED | Expires: Dec 3, 2031
Patent 7514444*PED | Expires: Jun 28, 2027
Patent 8008309*PED | Expires: May 13, 2028
Patent 8476284*PED | Expires: Jun 28, 2027
Patent 8497277*PED | Expires: Jun 28, 2027
Patent 8703780*PED | Expires: Jun 28, 2027
Patent 8735403*PED | Expires: Jun 28, 2027
Patent 8697711*PED | Expires: Jun 28, 2027
Patent 8754091*PED | Expires: Jun 28, 2027
Patent 8952015*PED | Expires: Jun 28, 2027
Patent 8999999*PED | Expires: Dec 3, 2031
Patent 8957079*PED | Expires: Jun 28, 2027
Patent 9125889*PED | Expires: Dec 3, 2031
Patent 9181257*PED | Expires: Jun 28, 2027
Patent 9296753*PED | Expires: Apr 30, 2034
Patent 9540382*PED | Expires: Feb 18, 2034
Patent 9713617*PED | Expires: Dec 3, 2033
Patent 9795604*PED | Expires: Apr 24, 2035
Patent 9801881*PED | Expires: Dec 3, 2031
Patent 9725455*PED | Expires: Dec 3, 2033
Patent 9801883*PED | Expires: Dec 3, 2031
Patent 8563563*PED | Expires: Oct 26, 2027
Patent 10016435*PED | Expires: Dec 3, 2031
Patent 10106548*PED | Expires: Dec 3, 2033
Patent 10125140*PED | Expires: Dec 3, 2033
Patent 10294231*PED | Expires: Dec 3, 2033
Patent 10294232*PED | Expires: Dec 3, 2033
Patent 10751342*PED | Expires: Dec 3, 2031
Patent 10478439*PED | Expires: Dec 3, 2031
Patent 10961251*PED | Expires: Dec 3, 2033
Patent 10463668*PED | Expires: Apr 24, 2035
Patent 10695350*PED | Expires: Apr 24, 2035

EXCLUSIVITY:
Code: NPP | Date: Aug 24, 2025
Code: ODE-405 | Date: Aug 24, 2029
Code: PED | Date: Feb 24, 2030
Code: PED | Date: Feb 24, 2026